FAERS Safety Report 18627727 (Version 1)
Quarter: 2020Q4

REPORT INFORMATION
  Report Type: Report from Study
  Country: US (occurrence: US)
  Receive Date: 20201217
  Receipt Date: 20201217
  Transmission Date: 20210114
  Serious: Yes (Hospitalization)
  Sender: FDA-Public Use
  Company Number: US-TAKEDA-US201903973

PATIENT
  Age: 47 Year
  Sex: Female
  Weight: 66.21 kg

DRUGS (34)
  1. TEDUGLUTIDE [Suspect]
     Active Substance: TEDUGLUTIDE
     Dosage: 0.05 MILLIGRAM/KILOGRAM (4 TED DOSE PER WEEK)
     Route: 065
     Dates: start: 20181220, end: 201904
  2. TEDUGLUTIDE [Suspect]
     Active Substance: TEDUGLUTIDE
     Dosage: 0.03 MILLIGRAM/KILOGRAM (5 TED DOSES PER WEEK)
     Route: 065
     Dates: start: 20191025
  3. OXYCODONE [Concomitant]
     Active Substance: OXYCODONE
     Indication: ABDOMINAL DISTENSION
     Dosage: UNK
  4. CEFEPIME [Concomitant]
     Active Substance: CEFEPIME HYDROCHLORIDE
     Indication: BACTERAEMIA
     Dosage: 1 GRAM, TID
     Route: 042
     Dates: start: 20200303, end: 20200304
  5. TEDUGLUTIDE [Suspect]
     Active Substance: TEDUGLUTIDE
     Indication: SHORT-BOWEL SYNDROME
     Dosage: UNK
     Route: 065
  6. TEDUGLUTIDE [Suspect]
     Active Substance: TEDUGLUTIDE
     Indication: SHORT-BOWEL SYNDROME
     Dosage: UNK
     Route: 065
  7. TEDUGLUTIDE [Suspect]
     Active Substance: TEDUGLUTIDE
     Dosage: 0.050 MILLIGRAM/KILOGRAM (7 TED DOSE PER WEEK)
     Route: 065
     Dates: start: 20181010, end: 20181107
  8. TEDUGLUTIDE [Suspect]
     Active Substance: TEDUGLUTIDE
     Dosage: 0.050 MILLIGRAM/KILOGRAM (7 TED DOSE PER WEEK)
     Route: 065
     Dates: start: 20181010, end: 20181107
  9. TEDUGLUTIDE [Suspect]
     Active Substance: TEDUGLUTIDE
     Dosage: 0.03 MILLIGRAM/KILOGRAM (7 TED DOSES PER WEEK)
     Route: 065
     Dates: start: 201904, end: 20191025
  10. TEDUGLUTIDE [Suspect]
     Active Substance: TEDUGLUTIDE
     Dosage: 0.050 MILLIGRAM/KILOGRAM (7 TED DOSE PER WEEK)
     Route: 065
     Dates: start: 20181010, end: 20181107
  11. TEDUGLUTIDE [Suspect]
     Active Substance: TEDUGLUTIDE
     Dosage: 0.05 MILLIGRAM/KILOGRAM (7 TED DOSE PER WEEK)
     Route: 065
     Dates: start: 20181117, end: 20181219
  12. TEDUGLUTIDE [Suspect]
     Active Substance: TEDUGLUTIDE
     Dosage: 0.05 MILLIGRAM/KILOGRAM (4 TED DOSE PER WEEK)
     Route: 065
     Dates: start: 20181220, end: 201904
  13. TEDUGLUTIDE [Suspect]
     Active Substance: TEDUGLUTIDE
     Dosage: 0.05 MILLIGRAM/KILOGRAM (4 TED DOSE PER WEEK)
     Route: 065
     Dates: start: 20181220, end: 201904
  14. TEDUGLUTIDE [Suspect]
     Active Substance: TEDUGLUTIDE
     Dosage: 0.03 MILLIGRAM/KILOGRAM (5 TED DOSES PER WEEK)
     Route: 065
     Dates: start: 20191025
  15. TEDUGLUTIDE [Suspect]
     Active Substance: TEDUGLUTIDE
     Dosage: 0.05 MILLIGRAM/KILOGRAM (7 TED DOSE PER WEEK)
     Route: 065
     Dates: start: 20181117, end: 20181219
  16. OXYCODONE [Concomitant]
     Active Substance: OXYCODONE
     Indication: PAIN
  17. TYLENOL [Concomitant]
     Active Substance: ACETAMINOPHEN
     Indication: ABDOMINAL DISTENSION
  18. VANCOMYCIN [Concomitant]
     Active Substance: VANCOMYCIN
     Indication: BACTERAEMIA
     Dosage: 15 MILLIGRAM/KILOGRAM, BID
     Route: 042
     Dates: start: 20200303, end: 20200304
  19. TEDUGLUTIDE [Suspect]
     Active Substance: TEDUGLUTIDE
     Indication: SHORT-BOWEL SYNDROME
     Dosage: UNK
     Route: 065
  20. TEDUGLUTIDE [Suspect]
     Active Substance: TEDUGLUTIDE
     Dosage: 0.05 MILLIGRAM/KILOGRAM (4 TED DOSE PER WEEK)
     Route: 065
     Dates: start: 20181220, end: 201904
  21. TEDUGLUTIDE [Suspect]
     Active Substance: TEDUGLUTIDE
     Dosage: 0.03 MILLIGRAM/KILOGRAM (7 TED DOSES PER WEEK)
     Route: 065
     Dates: start: 201904, end: 20191025
  22. TEDUGLUTIDE [Suspect]
     Active Substance: TEDUGLUTIDE
     Dosage: 0.03 MILLIGRAM/KILOGRAM (7 TED DOSES PER WEEK)
     Route: 065
     Dates: start: 201904, end: 20191025
  23. VANCOMYCIN [Concomitant]
     Active Substance: VANCOMYCIN
     Dosage: 1000 MILLIGRAM, BID
     Route: 042
     Dates: start: 20200304
  24. TEDUGLUTIDE [Suspect]
     Active Substance: TEDUGLUTIDE
     Dosage: 0.05 MILLIGRAM/KILOGRAM (7 TED DOSE PER WEEK)
     Route: 065
     Dates: start: 20181117, end: 20181219
  25. TEDUGLUTIDE [Suspect]
     Active Substance: TEDUGLUTIDE
     Dosage: 0.03 MILLIGRAM/KILOGRAM (7 TED DOSES PER WEEK)
     Route: 065
     Dates: start: 201904, end: 20191025
  26. TEDUGLUTIDE [Suspect]
     Active Substance: TEDUGLUTIDE
     Dosage: 0.03 MILLIGRAM/KILOGRAM (5 TED DOSES PER WEEK)
     Route: 065
     Dates: start: 20191025
  27. TEDUGLUTIDE [Suspect]
     Active Substance: TEDUGLUTIDE
     Indication: SHORT-BOWEL SYNDROME
     Dosage: UNK
     Route: 065
  28. TEDUGLUTIDE [Suspect]
     Active Substance: TEDUGLUTIDE
     Dosage: 0.03 MILLIGRAM/KILOGRAM (5 TED DOSES PER WEEK)
     Route: 065
     Dates: start: 20191025
  29. VANCOMYCIN [Concomitant]
     Active Substance: VANCOMYCIN
     Dosage: 1250 MILLIGRAM, Q12H
     Route: 042
     Dates: start: 20190911, end: 20191125
  30. TEDUGLUTIDE [Suspect]
     Active Substance: TEDUGLUTIDE
     Dosage: 0.050 MILLIGRAM/KILOGRAM (7 TED DOSE PER WEEK)
     Route: 065
     Dates: start: 20181010, end: 20181107
  31. TEDUGLUTIDE [Suspect]
     Active Substance: TEDUGLUTIDE
     Dosage: 0.05 MILLIGRAM/KILOGRAM (7 TED DOSE PER WEEK)
     Route: 065
     Dates: start: 20181117, end: 20181219
  32. PRILOSEC [Concomitant]
     Active Substance: OMEPRAZOLE MAGNESIUM
     Indication: GASTROOESOPHAGEAL REFLUX DISEASE
     Dosage: UNK
  33. TYLENOL [Concomitant]
     Active Substance: ACETAMINOPHEN
     Indication: PAIN
     Dosage: UNK
  34. ZOFRAN [Concomitant]
     Active Substance: ONDANSETRON HYDROCHLORIDE
     Indication: NAUSEA
     Dosage: UNK

REACTIONS (2)
  - Intestinal obstruction [Recovered/Resolved]
  - Rectal abscess [Recovered/Resolved]

NARRATIVE: CASE EVENT DATE: 20181106
